FAERS Safety Report 5731073-1 (Version None)
Quarter: 2008Q2

REPORT INFORMATION
  Report Type: 
  Country: None (occurrence: None)
  Receive Date: 20080505
  Receipt Date: 20080418
  Transmission Date: 20081010
  Serious: Yes (Hospitalization)
  Sender: FDA-Public Use
  Company Number: 2008-174979-NL

PATIENT
  Age: 31 Year
  Sex: Female
  Weight: 67.1 kg

DRUGS (4)
  1. NUVARING [Suspect]
     Dates: start: 20071120, end: 20080120
  2. LEXAPRO [Concomitant]
  3. SINGULAIR [Concomitant]
  4. ABILIFY [Concomitant]

REACTIONS (6)
  - CELLULITIS [None]
  - DRUG EXPOSURE DURING PREGNANCY [None]
  - ECTOPIC PREGNANCY [None]
  - JAW DISORDER [None]
  - PAIN IN JAW [None]
  - PREGNANCY WITH CONTRACEPTIVE DEVICE [None]
